FAERS Safety Report 12839833 (Version 3)
Quarter: 2016Q4

REPORT INFORMATION
  Report Type: Report from Study
  Country: US (occurrence: US)
  Receive Date: 20161012
  Receipt Date: 20161103
  Transmission Date: 20170207
  Serious: Yes (Hospitalization, Other)
  Sender: FDA-Public Use
  Company Number: US-GILEAD-2016-0237933

PATIENT
  Age: 64 Year
  Sex: Female
  Weight: 58.5 kg

DRUGS (8)
  1. LASIX [Concomitant]
     Active Substance: FUROSEMIDE
  2. TOPROL XL [Concomitant]
     Active Substance: METOPROLOL SUCCINATE
  3. TYVASO [Concomitant]
     Active Substance: TREPROSTINIL
  4. ALDACTONE [Concomitant]
     Active Substance: SPIRONOLACTONE
  5. OXYGEN. [Concomitant]
     Active Substance: OXYGEN
  6. COUMADIN [Concomitant]
     Active Substance: WARFARIN SODIUM
  7. ADCIRCA [Concomitant]
     Active Substance: TADALAFIL
  8. AMBRISENTAN [Suspect]
     Active Substance: AMBRISENTAN
     Indication: PRODUCT USED FOR UNKNOWN INDICATION
     Dosage: 10 MG, QD
     Route: 048
     Dates: start: 20110803

REACTIONS (3)
  - Balance disorder [Recovered/Resolved]
  - Multiple sclerosis relapse [Not Recovered/Not Resolved]
  - Fall [Recovered/Resolved]

NARRATIVE: CASE EVENT DATE: 20160928
